FAERS Safety Report 18907236 (Version 2)
Quarter: 2021Q1

REPORT INFORMATION
  Report Type: Report from Study
  Country: ES (occurrence: ES)
  Receive Date: 20210217
  Receipt Date: 20210308
  Transmission Date: 20210420
  Serious: Yes (Death, Life-Threatening, Hospitalization, Other)
  Sender: FDA-Public Use
  Company Number: ES-BEH-2020126328

PATIENT
  Age: 59 Year
  Sex: Male
  Weight: 99 kg

DRUGS (20)
  1. RIASTAP [Suspect]
     Active Substance: FIBRINOGEN HUMAN
     Dosage: UNK
     Route: 042
     Dates: start: 20200913, end: 20200913
  2. RED BLOOD CELLS [Concomitant]
     Active Substance: HUMAN RED BLOOD CELL
     Dosage: 8 PACKS
     Dates: start: 20200913
  3. RIFAMPICINA [Concomitant]
     Active Substance: RIFAMPIN
     Indication: TUBERCULOSIS
     Dosage: 600 MILLIGRAM/24, QD
     Route: 042
     Dates: start: 20200924, end: 20200930
  4. SOLTRIM [Concomitant]
     Active Substance: SULFAMETHOXAZOLE\TRIMETHOPRIM
     Indication: TUBERCULOSIS
     Dosage: 2 VIALS, TID
     Route: 042
     Dates: start: 20200919, end: 20201011
  5. ETAMBUTOL [ETHAMBUTOL] [Concomitant]
     Indication: TUBERCULOSIS
     Dosage: 1600 MILLIGRAM, QD (1600 MG/24 H)
     Route: 048
     Dates: start: 20200924, end: 20201008
  6. RIASTAP [Suspect]
     Active Substance: FIBRINOGEN HUMAN
     Indication: BLOOD FIBRINOGEN DECREASED
     Dosage: 10 GRAM, DURING THE LIVER TRANSPLANTATION
     Route: 042
     Dates: start: 20200913, end: 20200913
  7. RIASTAP [Suspect]
     Active Substance: FIBRINOGEN HUMAN
     Dosage: 10 GRAM
     Route: 042
     Dates: start: 20200913, end: 20200914
  8. PLATELETS [Concomitant]
     Active Substance: HUMAN PLATELET, ALLOGENIC
     Dosage: A POOL OF
     Dates: start: 20200913
  9. MEROPENEM. [Concomitant]
     Active Substance: MEROPENEM
     Indication: NOSOCOMIAL INFECTION
     Dosage: 1 GRAM, TID (1G/8H)
     Route: 042
     Dates: start: 20200917, end: 20200919
  10. AZTREONAM. [Concomitant]
     Active Substance: AZTREONAM
     Indication: NOSOCOMIAL INFECTION
     Dosage: 1 GRAM, TID (1G/8H)
     Route: 042
     Dates: start: 20200919, end: 20200928
  11. LINEZOLID. [Concomitant]
     Active Substance: LINEZOLID
     Indication: NOSOCOMIAL INFECTION
     Dosage: 600 MILLIGRAM, BID (600MG/12H)
     Route: 042
     Dates: start: 20200920, end: 20200922
  12. RIASTAP [Suspect]
     Active Substance: FIBRINOGEN HUMAN
     Dosage: UNK
     Route: 042
  13. LEVOFLOXACINO [Concomitant]
     Active Substance: LEVOFLOXACIN
     Indication: NOSOCOMIAL INFECTION
     Dosage: 750 MILLIGRAM, QD (750 MG/24 H)
     Route: 042
     Dates: start: 20200924, end: 20201008
  14. AVIBACTAM;CEFTAZIDIME [Concomitant]
     Active Substance: AVIBACTAM SODIUM\CEFTAZIDIME
     Indication: NOSOCOMIAL INFECTION
     Dosage: 2 GRAM, TID (2 G/8H)
     Route: 042
     Dates: start: 20200917, end: 20200930
  15. ANIDULAFUNGINA [Concomitant]
     Active Substance: ANIDULAFUNGIN
     Indication: NOSOCOMIAL INFECTION
     Dosage: 100 MILLIGRAM, QD
     Route: 042
     Dates: start: 20200917, end: 20201008
  16. TEDIZOLID [Concomitant]
     Active Substance: TEDIZOLID
     Indication: TUBERCULOSIS
     Dosage: 200 MILLIGRAM /6 H
     Route: 042
     Dates: start: 20200930, end: 20201008
  17. RIASTAP [Suspect]
     Active Substance: FIBRINOGEN HUMAN
     Dosage: UNK
     Route: 042
     Dates: start: 20200913, end: 20200913
  18. RIASTAP [Suspect]
     Active Substance: FIBRINOGEN HUMAN
     Indication: LIVER TRANSPLANT
     Dosage: UNK
     Route: 042
     Dates: start: 20200913, end: 20200913
  19. RIASTAP [Suspect]
     Active Substance: FIBRINOGEN HUMAN
     Dosage: UNK
     Route: 042
  20. RIASTAP [Suspect]
     Active Substance: FIBRINOGEN HUMAN
     Dosage: UNK
     Route: 042

REACTIONS (10)
  - Cough [Fatal]
  - Chronic kidney disease [Not Recovered/Not Resolved]
  - Liver function test abnormal [Unknown]
  - Ileus paralytic [Recovered/Resolved]
  - Hepatotoxicity [Fatal]
  - Off label use [Unknown]
  - Liver transplant rejection [Fatal]
  - No adverse event [Unknown]
  - Respiratory failure [Fatal]
  - Myocardial oedema [Fatal]

NARRATIVE: CASE EVENT DATE: 20200916
